FAERS Safety Report 10477325 (Version 1)
Quarter: 2014Q3

REPORT INFORMATION
  Report Type: Spontaneous
  Country: US (occurrence: US)
  Receive Date: 20140926
  Receipt Date: 20140926
  Transmission Date: 20150326
  Serious: No
  Sender: FDA-Public Use
  Company Number: US-ASTRAZENECA-2014SE66342

PATIENT
  Sex: Male

DRUGS (12)
  1. ZETIA [Concomitant]
     Active Substance: EZETIMIBE
  2. NITROGLYCERIN. [Concomitant]
     Active Substance: NITROGLYCERIN
  3. DEPO-TESTOSTERONE [Concomitant]
     Active Substance: TESTOSTERONE CYPIONATE
  4. IRON [Concomitant]
     Active Substance: IRON
  5. FLONASE [Concomitant]
     Active Substance: FLUTICASONE PROPIONATE
  6. BABY ASPIRIN [Concomitant]
     Active Substance: ASPIRIN
  7. METOPROLOL [Suspect]
     Active Substance: METOPROLOL
     Route: 048
  8. AMLODIPINE [Concomitant]
     Active Substance: AMLODIPINE BESYLATE
  9. TRILIPIX [Concomitant]
     Active Substance: FENOFIBRIC ACID
  10. CRESTOR [Suspect]
     Active Substance: ROSUVASTATIN CALCIUM
     Route: 048
  11. AMITRIPTYLINE [Suspect]
     Active Substance: AMITRIPTYLINE
     Route: 065
  12. VIAGRA [Concomitant]
     Active Substance: SILDENAFIL CITRATE

REACTIONS (8)
  - Blood testosterone decreased [Unknown]
  - Muscle spasms [Unknown]
  - Peripheral swelling [Unknown]
  - Osteoarthritis [Unknown]
  - Pain in extremity [Unknown]
  - Arthralgia [Unknown]
  - Low density lipoprotein increased [Unknown]
  - Blood potassium increased [Unknown]
